FAERS Safety Report 19058653 (Version 2)
Quarter: 2021Q2

REPORT INFORMATION
  Report Type: Spontaneous
  Country: US (occurrence: US)
  Receive Date: 20210325
  Receipt Date: 20210625
  Transmission Date: 20210717
  Serious: No
  Sender: FDA-Public Use
  Company Number: US-ASTELLAS-2021US004197

PATIENT
  Age: 70 Year
  Sex: Male

DRUGS (3)
  1. PADCEV [Suspect]
     Active Substance: ENFORTUMAB VEDOTIN-EJFV
     Indication: METASTATIC CARCINOMA OF THE BLADDER
     Dosage: 1 MG/KG, D1, D8
     Route: 042
  2. PEMBROLIZUMAB. [Suspect]
     Active Substance: PEMBROLIZUMAB
     Indication: METASTATIC CARCINOMA OF THE BLADDER
     Dosage: UNK UNK, UNKNOWN FREQ.
     Route: 065
  3. PADCEV [Suspect]
     Active Substance: ENFORTUMAB VEDOTIN-EJFV
     Dosage: DOSE REDUCTION 50%, UNKNOWN FREQ.
     Route: 042

REACTIONS (2)
  - Diarrhoea [Recovered/Resolved]
  - Symmetrical drug-related intertriginous and flexural exanthema [Recovered/Resolved]
